FAERS Safety Report 25674360 (Version 1)
Quarter: 2025Q3

REPORT INFORMATION
  Report Type: Spontaneous
  Country: VN (occurrence: VN)
  Receive Date: 20250813
  Receipt Date: 20250813
  Transmission Date: 20251021
  Serious: Yes (Other)
  Sender: ROCHE
  Company Number: VN-ROCHE-10000341537

PATIENT
  Age: 59 Year
  Sex: Male

DRUGS (4)
  1. ATEZOLIZUMAB [Suspect]
     Active Substance: ATEZOLIZUMAB
     Indication: Small cell lung cancer
     Route: 065
  2. ATEZOLIZUMAB [Suspect]
     Active Substance: ATEZOLIZUMAB
     Route: 065
  3. ETOPOSIDE [Suspect]
     Active Substance: ETOPOSIDE
     Indication: Small cell lung cancer
     Route: 065
  4. CARBOPLATIN [Suspect]
     Active Substance: CARBOPLATIN
     Indication: Small cell lung cancer
     Route: 065

REACTIONS (2)
  - Cerebral haemorrhage [Unknown]
  - Asthenia [Unknown]

NARRATIVE: CASE EVENT DATE: 20220501
